FAERS Safety Report 6576920-9 (Version None)
Quarter: 2010Q1

REPORT INFORMATION
  Report Type: 
  Country: None (occurrence: None)
  Receive Date: 20100210
  Receipt Date: 20100202
  Transmission Date: 20100710
  Serious: Yes (Death, Hospitalization)
  Sender: FDA-Public Use
  Company Number: US-ELI_LILLY_AND_COMPANY-US201002000948

PATIENT
  Sex: Male

DRUGS (7)
  1. ZYPREXA [Suspect]
     Indication: SCHIZOPHRENIA
     Dosage: 5 MG, EACH MORNING
     Route: 048
     Dates: start: 20090225, end: 20100119
  2. ZYPREXA [Suspect]
     Dosage: 10 MG, EACH EVENING
     Route: 048
     Dates: start: 20090225, end: 20100119
  3. RISPERDAL [Concomitant]
     Indication: SCHIZOPHRENIA
     Dosage: 1 MG, EACH MORNING
     Route: 065
     Dates: start: 20100119, end: 20100131
  4. RISPERDAL [Concomitant]
     Dosage: 3 MG, EACH EVENING
     Route: 065
     Dates: start: 20100119, end: 20100131
  5. GLYBURIDE [Concomitant]
     Indication: DIABETES MELLITUS
     Dosage: 5 MG, 2/D
     Route: 065
     Dates: start: 20090101, end: 20100131
  6. METFORMIN HCL [Concomitant]
     Indication: DIABETES MELLITUS
     Dosage: 500 MG, EACH MORNING
     Route: 065
     Dates: start: 20050401, end: 20100131
  7. PRANDIN [Concomitant]
     Indication: DIABETES MELLITUS
     Dosage: 1 MG, 3/D
     Route: 065
     Dates: start: 20100111, end: 20100131

REACTIONS (3)
  - BLOOD GLUCOSE INCREASED [None]
  - DEATH [None]
  - HOSPITALISATION [None]
